FAERS Safety Report 6785941-2 (Version None)
Quarter: 2010Q2

REPORT INFORMATION
  Report Type: 
  Country: None (occurrence: None)
  Receive Date: 20100622
  Receipt Date: 20100622
  Transmission Date: 20101027
  Serious: Yes (Life-Threatening, Other)
  Sender: FDA-Public Use
  Company Number: None

PATIENT
  Age: 66 Year
  Sex: Male
  Weight: 83.9154 kg

DRUGS (2)
  1. VITAMIN D [Suspect]
     Indication: VITAMIN D DEFICIENCY
     Dosage: 2000 IU ONCE A DAY PO, 4000 IU ONCE A DAY PO
     Route: 048
     Dates: start: 20100604, end: 20100612
  2. VITAMIN D [Suspect]
     Indication: VITAMIN D DEFICIENCY
     Dosage: 2000 IU ONCE A DAY PO, 4000 IU ONCE A DAY PO
     Route: 048
     Dates: start: 20100613, end: 20100614

REACTIONS (3)
  - DYSPHAGIA [None]
  - HEADACHE [None]
  - LYMPHADENOPATHY [None]
